FAERS Safety Report 6490227-X (Version None)
Quarter: 2009Q4

REPORT INFORMATION
  Report Type: 
  Country: None (occurrence: None)
  Receive Date: 20091211
  Receipt Date: 20091204
  Transmission Date: 20100525
  Serious: Yes (Hospitalization)
  Sender: FDA-Public Use
  Company Number: US-ROCHE-672954

PATIENT
  Age: 48 Year
  Sex: Female

DRUGS (1)
  1. XELODA [Suspect]
     Indication: HEAD AND NECK CANCER
     Route: 065
     Dates: start: 20091112

REACTIONS (1)
  - OESOPHAGEAL OBSTRUCTION [None]
